FAERS Safety Report 7275486-8 (Version None)
Quarter: 2011Q1

REPORT INFORMATION
  Report Type: 
  Country: None (occurrence: None)
  Receive Date: 20110203
  Receipt Date: 20110203
  Transmission Date: 20110831
  Serious: Yes (Other)
  Sender: FDA-Public Use
  Company Number: None

PATIENT
  Age: 12 Year
  Sex: Female
  Weight: 28.5766 kg

DRUGS (2)
  1. BOTOX [Suspect]
     Indication: MUSCLE SPASTICITY
     Dates: start: 20100716, end: 20110114
  2. BOTOX [Suspect]
     Indication: DROOLING
     Dates: start: 20100716, end: 20110114

REACTIONS (1)
  - PNEUMONIA ASPIRATION [None]
